FAERS Safety Report 5784284-3 (Version None)
Quarter: 2008Q2

REPORT INFORMATION
  Report Type: 
  Country: None (occurrence: None)
  Receive Date: 20080619
  Receipt Date: 20080606
  Transmission Date: 20081010
  Serious: Yes (Hospitalization)
  Sender: FDA-Public Use
  Company Number: S08-FRA-02114-01

PATIENT
  Age: 29 Year
  Sex: Male

DRUGS (32)
  1. ESCITALOPRAM [Suspect]
  2. ESCITALOPRAM [Suspect]
  3. KIDROLASE (ASPARAGINASE) [Suspect]
     Indication: LEUKAEMIA
     Dates: start: 20080125, end: 20080101
  4. KIDROLASE (ASPARAGINASE) [Suspect]
     Indication: PRECURSOR T-LYMPHOBLASTIC LYMPHOMA/LEUKAEMIA
     Dates: start: 20080125, end: 20080101
  5. KIDROLASE (ASPARAGINASE) [Suspect]
     Indication: LEUKAEMIA
     Dates: start: 20080221, end: 20080101
  6. KIDROLASE (ASPARAGINASE) [Suspect]
     Indication: PRECURSOR T-LYMPHOBLASTIC LYMPHOMA/LEUKAEMIA
     Dates: start: 20080221, end: 20080101
  7. KIDROLASE (ASPARAGINASE) [Suspect]
     Indication: LEUKAEMIA
     Dates: start: 20080318, end: 20080101
  8. KIDROLASE (ASPARAGINASE) [Suspect]
     Indication: PRECURSOR T-LYMPHOBLASTIC LYMPHOMA/LEUKAEMIA
     Dates: start: 20080318, end: 20080101
  9. KIDROLASE (ASPARAGINASE) [Suspect]
     Indication: LEUKAEMIA
     Dates: start: 20071207
  10. KIDROLASE (ASPARAGINASE) [Suspect]
     Indication: PRECURSOR T-LYMPHOBLASTIC LYMPHOMA/LEUKAEMIA
     Dates: start: 20071207
  11. KIDROLASE (ASPARAGINASE) [Suspect]
     Indication: LEUKAEMIA
     Dates: start: 20080109, end: 20080101
  12. CYTARABINE [Suspect]
     Indication: LEUKAEMIA
     Dates: start: 20080109, end: 20080101
  13. CYTARABINE [Suspect]
     Indication: LEUKAEMIA
     Dates: start: 20080221, end: 20080101
  14. PURINETHOL [Suspect]
     Indication: LEUKAEMIA
     Dates: start: 20080221, end: 20080101
  15. PURINETHOL [Suspect]
     Indication: LEUKAEMIA
     Dates: start: 20080207, end: 20080101
  16. PURINETHOL [Suspect]
     Indication: LEUKAEMIA
     Dates: start: 20071207
  17. VINCRISTINE [Suspect]
     Indication: LEUKAEMIA
     Dates: start: 20080125, end: 20080101
  18. VINCRISTINE [Suspect]
     Indication: LEUKAEMIA
     Dates: start: 20080318, end: 20080101
  19. VINCRISTINE [Suspect]
     Indication: LEUKAEMIA
     Dates: start: 20071201, end: 20071201
  20. VINCRISTINE [Suspect]
     Indication: LEUKAEMIA
     Dates: start: 20071207
  21. VINCRISTINE [Suspect]
     Indication: T-CELL LYMPHOMA
     Dates: start: 20071207
  22. METHOTREXATE [Suspect]
     Indication: LEUKAEMIA
     Dates: start: 20080125, end: 20080101
  23. METHOTREXATE [Suspect]
     Indication: T-CELL LYMPHOMA
     Dates: start: 20080125, end: 20080101
  24. METHOTREXATE [Suspect]
     Indication: LEUKAEMIA
     Dates: start: 20080318, end: 20080101
  25. METHOTREXATE [Suspect]
     Indication: T-CELL LYMPHOMA
     Dates: start: 20080318, end: 20080101
  26. METHOTREXATE [Suspect]
     Indication: LEUKAEMIA
     Dates: start: 20080401, end: 20080101
  27. BACTRIM [Concomitant]
  28. VALACYCLOVIR HCL [Concomitant]
  29. CYCLOPHOSPHAMIDE [Concomitant]
  30. PREDNISONE [Concomitant]
  31. DAUNORUBICIN HCL [Concomitant]
  32. ETOPOSIDE [Concomitant]

REACTIONS (4)
  - CONDITION AGGRAVATED [None]
  - HEADACHE [None]
  - INJURY [None]
  - SUBDURAL HAEMATOMA [None]
